FAERS Safety Report 21058964 (Version 1)
Quarter: 2022Q3

REPORT INFORMATION
  Report Type: Spontaneous
  Country: US (occurrence: None)
  Receive Date: 20220708
  Receipt Date: 20220708
  Transmission Date: 20221026
  Serious: Yes (Other)
  Sender: FDA-Public Use
  Company Number: None

PATIENT
  Age: 62 Year
  Sex: Female
  Weight: 63.9 kg

DRUGS (9)
  1. ROSUVASTATIN [Suspect]
     Active Substance: ROSUVASTATIN
     Indication: Blood cholesterol increased
     Dosage: OTHER QUANTITY : 1 TABLET(S);?FREQUENCY : AT BEDTIME;?
     Route: 048
     Dates: start: 20220701, end: 20220706
  2. SYNTHROID [Concomitant]
     Active Substance: LEVOTHYROXINE SODIUM
  3. CLONAZEPAM [Concomitant]
     Active Substance: CLONAZEPAM
  4. VITAMIN C [Concomitant]
     Active Substance: ASCORBIC ACID
  5. CITRACAL WITH D [Concomitant]
  6. KRILL OIL [Concomitant]
     Active Substance: DIETARY SUPPLEMENT\KRILL OIL
  7. DIETARY SUPPLEMENT\UBIDECARENONE [Concomitant]
     Active Substance: DIETARY SUPPLEMENT\UBIDECARENONE
  8. CHONDROITIN SULFATE A\GLUCOSAMINE [Concomitant]
     Active Substance: CHONDROITIN SULFATE A\GLUCOSAMINE
  9. NIACIN [Concomitant]
     Active Substance: NIACIN

REACTIONS (8)
  - Product substitution issue [None]
  - Palpitations [None]
  - Palpitations [None]
  - Nausea [None]
  - Dizziness [None]
  - Abdominal discomfort [None]
  - Tinnitus [None]
  - Hyperacusis [None]

NARRATIVE: CASE EVENT DATE: 20220701
